FAERS Safety Report 25625733 (Version 1)
Quarter: 2025Q3

REPORT INFORMATION
  Report Type: Other
  Country: US (occurrence: US)
  Receive Date: 20250731
  Receipt Date: 20250731
  Transmission Date: 20251020
  Serious: Yes (Hospitalization, Other)
  Sender: ANI
  Company Number: US-ANIPHARMA-023889

PATIENT
  Age: 39 Year
  Sex: Female

DRUGS (11)
  1. ISOSORBIDE [Suspect]
     Active Substance: ISOSORBIDE
     Indication: Heart failure with reduced ejection fraction
  2. HYDRALAZINE [Concomitant]
     Active Substance: HYDRALAZINE HYDROCHLORIDE
     Indication: Heart failure with reduced ejection fraction
  3. CARVEDILOL [Concomitant]
     Active Substance: CARVEDILOL
     Indication: Heart failure with reduced ejection fraction
  4. NOREPINEPHRINE [Concomitant]
     Active Substance: NOREPINEPHRINE
     Indication: Product used for unknown indication
  5. INSULIN NOS [Concomitant]
     Active Substance: INSULIN NOS
     Indication: Product used for unknown indication
  6. DEXTROSE [Concomitant]
     Active Substance: DEXTROSE MONOHYDRATE
     Indication: Product used for unknown indication
  7. DOPAMINE [Concomitant]
     Active Substance: DOPAMINE HYDROCHLORIDE
     Indication: Product used for unknown indication
  8. BENZODIAZEPINE [Concomitant]
     Active Substance: BENZODIAZEPINE
     Indication: Product used for unknown indication
  9. COCAINE [Concomitant]
     Active Substance: COCAINE
     Indication: Product used for unknown indication
  10. CARVEDILOL [Concomitant]
     Active Substance: CARVEDILOL
     Indication: Suicide attempt
     Route: 048
  11. ISOSORBIDE [Suspect]
     Active Substance: ISOSORBIDE
     Indication: Suicide attempt
     Route: 048

REACTIONS (3)
  - Shock [Recovering/Resolving]
  - Acidosis [Recovering/Resolving]
  - Intentional overdose [Unknown]
